FAERS Safety Report 4447528-6 (Version None)
Quarter: 2004Q3

REPORT INFORMATION
  Report Type: 
  Country: None (occurrence: None)
  Receive Date: 20040823
  Receipt Date: 20040603
  Transmission Date: 20050211
  Serious: No
  Sender: FDA-Public Use
  Company Number: PHEH2004US06082

PATIENT
  Age: 81 Year
  Sex: Female

DRUGS (8)
  1. ZELNORM [Suspect]
     Indication: IRRITABLE BOWEL SYNDROME
     Dosage: 6 MG, BID
     Dates: start: 20040530, end: 20040531
  2. AMLODIPINE BESYLATE [Concomitant]
  3. BENICAR [Concomitant]
  4. TRYAMPTARINE [Concomitant]
  5. ATENOLOL [Concomitant]
  6. AMITRIPTYLINE HCL [Concomitant]
  7. PREVACID [Concomitant]
  8. ASPIRIN [Concomitant]

REACTIONS (3)
  - DRY SKIN [None]
  - FACE OEDEMA [None]
  - FLUSHING [None]
